FAERS Safety Report 14240183 (Version 1)
Quarter: 2017Q4

REPORT INFORMATION
  Report Type: Report from Study
  Country: US (occurrence: US)
  Receive Date: 20171130
  Receipt Date: 20171130
  Transmission Date: 20180321
  Serious: Yes (Hospitalization, Other)
  Sender: FDA-Public Use
  Company Number: US-PRAGMA PHARMACEUTICALS, LLC-2017PRG00076

PATIENT
  Age: 84 Year
  Sex: Female

DRUGS (2)
  1. KEFLEX [Suspect]
     Active Substance: CEPHALEXIN
  2. HUMIRA [Suspect]
     Active Substance: ADALIMUMAB
     Indication: CROHN^S DISEASE
     Dosage: 40 MG, 2X/MONTH
     Route: 058

REACTIONS (7)
  - Sepsis [Recovered/Resolved]
  - Urinary tract infection [Recovered/Resolved]
  - Fungal infection [Recovered/Resolved]
  - Drug hypersensitivity [Recovered/Resolved]
  - Clostridium difficile infection [Recovered/Resolved]
  - Hypomagnesaemia [Recovered/Resolved]
  - Hypokalaemia [Recovered/Resolved]

NARRATIVE: CASE EVENT DATE: 20160809
